FAERS Safety Report 25752014 (Version 1)
Quarter: 2025Q3

REPORT INFORMATION
  Report Type: Spontaneous
  Country: US (occurrence: None)
  Receive Date: 20250902
  Receipt Date: 20250902
  Transmission Date: 20251021
  Serious: Yes (Other)
  Sender: FDA-CTU
  Company Number: None

PATIENT
  Sex: Female

DRUGS (5)
  1. LENALIDOMIDE [Suspect]
     Active Substance: LENALIDOMIDE
     Indication: Plasma cell myeloma
     Route: 048
     Dates: start: 20250830
  2. ASPIRIN [Concomitant]
     Active Substance: ASPIRIN
  3. VIT E/D-ALPH CAP 200UNIT [Concomitant]
  4. VITAMIN B-12TAB 500MCG [Concomitant]
  5. VITAMIN C TAB 500MG [Concomitant]

REACTIONS (1)
  - Hip surgery [None]
